FAERS Safety Report 11480979 (Version 8)
Quarter: 2015Q4

REPORT INFORMATION
  Report Type: Spontaneous
  Country: JP (occurrence: JP)
  Receive Date: 20150909
  Receipt Date: 20151009
  Transmission Date: 20160304
  Serious: Yes (Other)
  Sender: FDA-Public Use
  Company Number: PHJP2015JP015363

PATIENT
  Age: 76 Year
  Sex: Male

DRUGS (4)
  1. RIFAMPICIN [Interacting]
     Active Substance: RIFAMPIN
     Indication: SPONDYLITIS
  2. RIFAMPICIN [Interacting]
     Active Substance: RIFAMPIN
     Indication: STAPHYLOCOCCAL INFECTION
     Dosage: 450 MG, QD
     Route: 048
  3. CLARITHROMYCIN. [Interacting]
     Active Substance: CLARITHROMYCIN
     Indication: PRODUCT USED FOR UNKNOWN INDICATION
     Route: 065
  4. GLIVEC [Suspect]
     Active Substance: IMATINIB MESYLATE
     Indication: GASTROINTESTINAL STROMAL TUMOUR
     Dosage: 400 MG, QD
     Route: 048

REACTIONS (3)
  - Osteomyelitis acute [Recovered/Resolved]
  - Staphylococcal infection [Recovered/Resolved]
  - Drug interaction [Unknown]
